FAERS Safety Report 8540603-6 (Version None)
Quarter: 2012Q3

REPORT INFORMATION
  Report Type: 
  Country: None (occurrence: None)
  Receive Date: 20120726
  Receipt Date: 20120718
  Transmission Date: 20120928
  Serious: Yes (Other)
  Sender: FDA-Public Use
  Company Number: BR-BAYER-2012-072036

PATIENT
  Age: 74 Year
  Sex: Male
  Weight: 56 kg

DRUGS (5)
  1. SORAFENIB (RAF KINASE INHIBITOR) [Suspect]
     Indication: HEPATIC NEOPLASM MALIGNANT
     Dosage: 400 MG, BID
     Route: 048
     Dates: start: 20120301, end: 20120701
  2. EPHYNAL [Concomitant]
     Indication: VITAMIN SUPPLEMENTATION
     Dosage: UNK
     Route: 048
     Dates: start: 20111101
  3. TRAMADOL HYDROCHLORIDE [Concomitant]
     Indication: HEPATIC PAIN
     Dosage: UNK
     Route: 048
     Dates: start: 20120301
  4. SORAFENIB (RAF KINASE INHIBITOR) [Suspect]
     Dosage: 200 MG, BID
     Route: 048
     Dates: start: 20120717
  5. BUSCOPAN [Concomitant]
     Indication: HEPATIC PAIN
     Dosage: 40 GTT, PRN
     Route: 048
     Dates: start: 20111101

REACTIONS (2)
  - TONGUE INJURY [None]
  - PHARYNGEAL INJURY [None]
